FAERS Safety Report 11722389 (Version 1)
Quarter: 2015Q4

REPORT INFORMATION
  Report Type: Spontaneous
  Country: US (occurrence: None)
  Receive Date: 20151110
  Receipt Date: 20151110
  Transmission Date: 20160304
  Serious: Yes (Life-Threatening, Hospitalization)
  Sender: FDA-Public Use
  Company Number: None

PATIENT
  Age: 65 Year
  Sex: Male
  Weight: 85.2 kg

DRUGS (2)
  1. ALFUZOSIN [Concomitant]
     Active Substance: ALFUZOSIN
  2. PHOTOFRIN [Suspect]
     Active Substance: PORFIMER SODIUM
     Indication: PHOTODYNAMIC THERAPY
     Dates: start: 20151107, end: 20151108

REACTIONS (5)
  - Respiratory disorder [None]
  - Facial pain [None]
  - Swelling face [None]
  - Oropharyngeal swelling [None]
  - Enlarged uvula [None]

NARRATIVE: CASE EVENT DATE: 20151108
